FAERS Safety Report 5834229-2 (Version None)
Quarter: 2008Q3

REPORT INFORMATION
  Report Type: 
  Country: None (occurrence: None)
  Receive Date: 20080801
  Receipt Date: 20080716
  Transmission Date: 20090109
  Serious: Yes (Death, Hospitalization)
  Sender: FDA-Public Use
  Company Number: 2008AL008464

PATIENT
  Age: 90 Year
  Sex: Female
  Weight: 66.6788 kg

DRUGS (2)
  1. DIGOXIN [Suspect]
     Indication: HEART RATE IRREGULAR
     Dosage: DAILY, PO
     Route: 048
     Dates: start: 20060301, end: 20080108
  2. COUMADIN [Concomitant]

REACTIONS (10)
  - ANOREXIA [None]
  - APNOEA [None]
  - ASTHENIA [None]
  - DIZZINESS [None]
  - DYSURIA [None]
  - FATIGUE [None]
  - HYPOPHAGIA [None]
  - LISTLESS [None]
  - SOMNOLENCE [None]
  - WHEEZING [None]
